FAERS Safety Report 23182134 (Version 1)
Quarter: 2023Q4

REPORT INFORMATION
  Report Type: Spontaneous
  Country: US (occurrence: None)
  Receive Date: 20231114
  Receipt Date: 20231114
  Transmission Date: 20240109
  Serious: Yes (unspecified)
  Sender: FDA-Public Use
  Company Number: None

PATIENT
  Age: 68 Year
  Sex: Male

DRUGS (3)
  1. EYLEA [Suspect]
     Active Substance: AFLIBERCEPT
     Indication: Type 2 diabetes mellitus
     Dosage: OTHER FREQUENCY : EVERY 4 WEEKS;?
     Route: 031
     Dates: start: 20230926, end: 20231113
  2. EYLEA [Suspect]
     Active Substance: AFLIBERCEPT
     Indication: Diabetic retinopathy
  3. EYLEA [Suspect]
     Active Substance: AFLIBERCEPT
     Indication: Diabetic retinal oedema

REACTIONS (5)
  - Eye pain [None]
  - Photophobia [None]
  - Vision blurred [None]
  - Eye inflammation [None]
  - Autoimmune disorder [None]

NARRATIVE: CASE EVENT DATE: 20231113
